FAERS Safety Report 13612020 (Version 1)
Quarter: 2017Q2

REPORT INFORMATION
  Report Type: Spontaneous
  Country: US (occurrence: US)
  Receive Date: 20170605
  Receipt Date: 20170605
  Transmission Date: 20170830
  Serious: Yes (Life-Threatening, Hospitalization)
  Sender: FDA-Public Use
  Company Number: None

PATIENT
  Age: 72 Year
  Sex: Male
  Weight: 106.9 kg

DRUGS (1)
  1. WARFARIN [Suspect]
     Active Substance: WARFARIN
     Route: 048
     Dates: start: 20151204

REACTIONS (9)
  - Haemorrhage [None]
  - International normalised ratio increased [None]
  - Dizziness [None]
  - Haematocrit decreased [None]
  - Haemoglobin decreased [None]
  - Therapy change [None]
  - International normalised ratio abnormal [None]
  - Melaena [None]
  - Frequent bowel movements [None]

NARRATIVE: CASE EVENT DATE: 20160513
